APPROVED DRUG PRODUCT: ACYCLOVIR
Active Ingredient: ACYCLOVIR
Strength: 5%
Dosage Form/Route: CREAM;TOPICAL
Application: A205470 | Product #001 | TE Code: AB
Applicant: SUN PHARMA CANADA INC
Approved: Jun 12, 2024 | RLD: No | RS: No | Type: RX